FAERS Safety Report 6073032-8 (Version None)
Quarter: 2009Q1

REPORT INFORMATION
  Report Type: 
  Country: None (occurrence: None)
  Receive Date: 20090209
  Receipt Date: 20090209
  Transmission Date: 20090719
  Serious: Yes (Life-Threatening, Hospitalization, Disabling, Other)
  Sender: FDA-Public Use
  Company Number: None

PATIENT
  Sex: Female
  Weight: 60.3284 kg

DRUGS (1)
  1. CEFACLOR [Suspect]
     Indication: SINUSITIS
     Dates: start: 20031214, end: 20031228

REACTIONS (8)
  - ABASIA [None]
  - AUTOIMMUNE THYROIDITIS [None]
  - CHRONIC FATIGUE SYNDROME [None]
  - DRUG HYPERSENSITIVITY [None]
  - DYSPNOEA [None]
  - FIBROMYALGIA [None]
  - HEPATITIS [None]
  - INFLUENZA LIKE ILLNESS [None]
